FAERS Safety Report 8858549 (Version 1)
Quarter: 2012Q4

REPORT INFORMATION
  Report Type: 
  Country: JP (occurrence: JP)
  Receive Date: 20121024
  Receipt Date: 20121024
  Transmission Date: 20130627
  Serious: Yes (Hospitalization)
  Sender: FDA-Public Use
  Company Number: JP-PFIZER INC-2012258473

PATIENT
  Age: 70 Year
  Sex: Female

DRUGS (1)
  1. IDAMYCIN [Suspect]
     Indication: ACUTE PROMYELOCYTIC LEUKAEMIA
     Dosage: 20 mg for 3 days
     Route: 041

REACTIONS (2)
  - Oesophagitis [Recovering/Resolving]
  - Oesophageal stenosis [Recovering/Resolving]
